FAERS Safety Report 5201207-6 (Version None)
Quarter: 2007Q1

REPORT INFORMATION
  Report Type: 
  Country: None (occurrence: None)
  Receive Date: 20070103
  Receipt Date: 20061214
  Transmission Date: 20070707
  Serious: Yes (Hospitalization, Other)
  Sender: FDA-Public Use
  Company Number: 15382

PATIENT
  Age: 8 Year
  Sex: Male

DRUGS (7)
  1. MIDAZOLAM HYDROCHLORIDE [Suspect]
     Indication: ANAESTHESIA
     Dosage: 2 MG TOTAL IV
     Route: 042
     Dates: start: 20061201, end: 20061201
  2. VANCOMYCIN [Suspect]
     Indication: INFECTION
     Dosage: 160 MG QID PO
     Route: 048
     Dates: start: 20061127, end: 20061201
  3. PROPOFOL [Suspect]
     Indication: ANAESTHESIA
     Dosage: 60 MG TOTAL IV
     Route: 042
     Dates: start: 20061201, end: 20061201
  4. FENTANYL TRANSDERMAL SYSTEM [Suspect]
     Indication: ANAESTHESIA
     Dosage: 50 ?G TOTAL IV
     Route: 042
     Dates: start: 20061201, end: 20061201
  5. NIMBEX [Suspect]
     Indication: ANAESTHESIA
     Dosage: 4 MG TOTAL IV
     Route: 042
     Dates: start: 20061201, end: 20061201
  6. PERFALGAN [Suspect]
     Indication: ANAESTHESIA
     Dosage: 250 MG TOTAL IV
     Route: 042
     Dates: start: 20061201, end: 20061201
  7. SEVOFLURAN [Concomitant]

REACTIONS (1)
  - ANAPHYLACTIC REACTION [None]
